FAERS Safety Report 8766150 (Version 2)
Quarter: 2012Q4

REPORT INFORMATION
  Report Type: 
  Country: GB (occurrence: GB)
  Receive Date: 20120904
  Receipt Date: 20120914
  Transmission Date: 20130627
  Serious: Yes (Other)
  Sender: FDA-Public Use
  Company Number: GB-009507513-2011SP028508

PATIENT

DRUGS (2)
  1. NEXPLANON [Suspect]
     Dosage: UNK
     Route: 059
     Dates: start: 20110614, end: 20111122
  2. NEXPLANON [Suspect]
     Dosage: UNK
     Route: 059
     Dates: start: 20110614, end: 20111122

REACTIONS (6)
  - Abortion spontaneous complete [Recovered/Resolved]
  - Medical device removal [Unknown]
  - Medical device complication [Unknown]
  - Pregnancy with implant contraceptive [Unknown]
  - Application site pain [Unknown]
  - Amenorrhoea [Unknown]
